FAERS Safety Report 6762652-0 (Version None)
Quarter: 2010Q2

REPORT INFORMATION
  Report Type: 
  Country: None (occurrence: None)
  Receive Date: 20100609
  Receipt Date: 20100526
  Transmission Date: 20101027
  Serious: Yes (Hospitalization, Other)
  Sender: FDA-Public Use
  Company Number: PHHO2010US08013

PATIENT
  Sex: Male
  Weight: 63 kg

DRUGS (3)
  1. IMATINIB [Suspect]
     Indication: GASTROINTESTINAL STROMAL TUMOUR
     Dosage: 200 MG, QD
     Route: 048
     Dates: start: 20080109, end: 20100122
  2. IMATINIB [Suspect]
     Dosage: UNK
  3. SUNITINIB MALATE [Suspect]
     Indication: GASTROINTESTINAL STROMAL TUMOUR
     Dosage: UNK
     Dates: start: 20080109, end: 20100121

REACTIONS (9)
  - ABDOMINAL PAIN [None]
  - BACK PAIN [None]
  - BILE DUCT STENOSIS [None]
  - CHEST PAIN [None]
  - CHOLANGITIS [None]
  - CHOLECYSTECTOMY [None]
  - LAPAROSCOPY [None]
  - SEPSIS [None]
  - SMALL INTESTINAL OBSTRUCTION [None]
